FAERS Safety Report 13581288 (Version 2)
Quarter: 2017Q2

REPORT INFORMATION
  Report Type: Report from Study
  Country: US (occurrence: US)
  Receive Date: 20170525
  Receipt Date: 20170623
  Transmission Date: 20170830
  Serious: Yes (Hospitalization)
  Sender: FDA-Public Use
  Company Number: US-AMGEN-USACT2017076517

PATIENT
  Age: 40 Year
  Sex: Female

DRUGS (3)
  1. PANITUMUMAB [Suspect]
     Active Substance: PANITUMUMAB
     Indication: TRIPLE NEGATIVE BREAST CANCER
     Dosage: 188 MG, QWK
     Route: 042
     Dates: start: 20170324
  2. PANITUMUMAB [Suspect]
     Active Substance: PANITUMUMAB
     Dosage: 188 MG, QWK
     Route: 042
     Dates: start: 20170519
  3. PANITUMUMAB [Suspect]
     Active Substance: PANITUMUMAB
     Dosage: 152 MG, QWK
     Route: 042
     Dates: start: 20170609

REACTIONS (3)
  - Pharyngitis [Recovered/Resolved]
  - Urinary tract infection [Recovered/Resolved]
  - Dehydration [Recovered/Resolved]

NARRATIVE: CASE EVENT DATE: 20170511
